FAERS Safety Report 24422213 (Version 1)
Quarter: 2024Q4

REPORT INFORMATION
  Report Type: Spontaneous
  Country: US (occurrence: US)
  Receive Date: 20241010
  Receipt Date: 20241010
  Transmission Date: 20250114
  Serious: Yes (Life-Threatening, Hospitalization)
  Sender: MYLAN
  Company Number: US-MYLANLABS-2024M1090668

PATIENT
  Age: 27 Year
  Sex: Female

DRUGS (2)
  1. LITHIUM [Suspect]
     Active Substance: LITHIUM
     Indication: Bipolar disorder
     Dosage: UNK
     Route: 065
  2. DANTROLENE [Concomitant]
     Active Substance: DANTROLENE
     Indication: Drug therapy
     Dosage: UNK
     Route: 065

REACTIONS (9)
  - Depressed level of consciousness [Unknown]
  - Hypernatraemia [Recovering/Resolving]
  - Toxicity to various agents [Recovering/Resolving]
  - Muscle rigidity [Recovering/Resolving]
  - Renal impairment [Recovering/Resolving]
  - Mental disorder [Recovering/Resolving]
  - Lethargy [Unknown]
  - Hyperthermia [Recovering/Resolving]
  - Hyperreflexia [Recovering/Resolving]
